FAERS Safety Report 6459097-X (Version None)
Quarter: 2009Q4

REPORT INFORMATION
  Report Type: 
  Country: None (occurrence: None)
  Receive Date: 20091125
  Receipt Date: 20091125
  Transmission Date: 20100525
  Serious: No
  Sender: FDA-Public Use
  Company Number: None

PATIENT
  Age: 77 Year
  Sex: Male
  Weight: 65.7716 kg

DRUGS (1)
  1. COREG CR [Suspect]
     Indication: CARDIAC DISORDER
     Dosage: UNKNOWN-SEE CARDIOLOGIST
     Dates: start: 20070401, end: 20070616

REACTIONS (8)
  - CONTUSION [None]
  - FALL [None]
  - HAEMORRHAGE [None]
  - LACERATION [None]
  - MUSCULAR WEAKNESS [None]
  - PRODUCT QUALITY ISSUE [None]
  - SOMNOLENCE [None]
  - SUBDURAL HAEMATOMA [None]
